FAERS Safety Report 19807873 (Version 1)
Quarter: 2021Q3

REPORT INFORMATION
  Report Type: Spontaneous
  Country: US (occurrence: US)
  Receive Date: 20210908
  Receipt Date: 20210908
  Transmission Date: 20211014
  Serious: Yes (Other)
  Sender: FDA-Public Use
  Company Number: US-ALLERGAN-2125753US

PATIENT
  Sex: Female

DRUGS (3)
  1. BOTOX COSMETIC [Suspect]
     Active Substance: ONABOTULINUMTOXINA
     Indication: SKIN WRINKLING
     Dosage: 4 UNITS, SINGLE
     Dates: start: 20210708, end: 20210708
  2. SYNTHROID [Concomitant]
     Active Substance: LEVOTHYROXINE SODIUM
     Indication: THYROID DISORDER
  3. BOTOX COSMETIC [Suspect]
     Active Substance: ONABOTULINUMTOXINA
     Indication: SKIN WRINKLING
     Dosage: 6 UNITS, SINGLE
     Dates: start: 20210708, end: 20210708

REACTIONS (17)
  - Condition aggravated [Unknown]
  - Off label use [Unknown]
  - Asthenia [Not Recovered/Not Resolved]
  - Nausea [Not Recovered/Not Resolved]
  - Bedridden [Recovered/Resolved]
  - Feeling abnormal [Not Recovered/Not Resolved]
  - Eye inflammation [Not Recovered/Not Resolved]
  - Loss of personal independence in daily activities [Not Recovered/Not Resolved]
  - Retinal artery occlusion [Unknown]
  - Pupil fixed [Unknown]
  - Eyelid ptosis [Unknown]
  - Asthenopia [Not Recovered/Not Resolved]
  - Visual impairment [Not Recovered/Not Resolved]
  - Foreign body sensation in eyes [Not Recovered/Not Resolved]
  - Extraocular muscle paresis [Not Recovered/Not Resolved]
  - Dry eye [Not Recovered/Not Resolved]
  - Impaired driving ability [Not Recovered/Not Resolved]

NARRATIVE: CASE EVENT DATE: 2021
